FAERS Safety Report 8070754-4 (Version None)
Quarter: 2012Q1

REPORT INFORMATION
  Report Type: 
  Country: None (occurrence: None)
  Receive Date: 20120125
  Receipt Date: 20120123
  Transmission Date: 20120608
  Serious: Yes (Death, Hospitalization)
  Sender: FDA-Public Use
  Company Number: AU-JNJFOC-20120106511

PATIENT
  Sex: Female

DRUGS (1)
  1. SIMPONI [Suspect]
     Indication: PSORIATIC ARTHROPATHY
     Route: 058
     Dates: start: 20100423

REACTIONS (5)
  - RESPIRATORY DISORDER [None]
  - ARTHRITIS [None]
  - DEHYDRATION [None]
  - DEATH [None]
  - PULMONARY FIBROSIS [None]
